FAERS Safety Report 4353477-4 (Version None)
Quarter: 2004Q2

REPORT INFORMATION
  Report Type: 
  Country: None (occurrence: None)
  Receive Date: 20040505
  Receipt Date: 20040505
  Transmission Date: 20050107
  Serious: Yes (Hospitalization)
  Sender: FDA-Public Use
  Company Number: None

PATIENT
  Age: 66 Year
  Sex: Male
  Weight: 128.4 kg

DRUGS (9)
  1. AMIODARONE HCL [Suspect]
     Indication: ATRIAL FIBRILLATION
     Dosage: 200 MG , 200 MG DA, ORAL
     Route: 048
     Dates: end: 20030902
  2. COUMADIN [Concomitant]
  3. TERAZOSIN HCL [Concomitant]
  4. SIMVASTATIN [Concomitant]
  5. ALBUTEROL [Concomitant]
  6. SALMETEROL [Concomitant]
  7. FLUTICASONE PROP INH [Concomitant]
  8. CLOTRIMAZOLE [Concomitant]
  9. RANITIDINE HCL [Concomitant]

REACTIONS (2)
  - PULMONARY FIBROSIS [None]
  - RESPIRATORY DISTRESS [None]
